FAERS Safety Report 15434895 (Version 2)
Quarter: 2018Q4

REPORT INFORMATION
  Report Type: Spontaneous
  Country: GB (occurrence: GB)
  Receive Date: 20180927
  Receipt Date: 20181114
  Transmission Date: 20190204
  Serious: Yes (Death, Other)
  Sender: FDA-Public Use
  Company Number: GB-MYLANLABS-2018M1071253

PATIENT
  Sex: Male
  Weight: 122 kg

DRUGS (1)
  1. CLOZARIL [Suspect]
     Active Substance: CLOZAPINE
     Indication: SCHIZOPHRENIA
     Dosage: 400 MG, PM
     Route: 048
     Dates: start: 20040617

REACTIONS (3)
  - Coronary artery thrombosis [Unknown]
  - Ketoacidosis [Unknown]
  - Death [Fatal]

NARRATIVE: CASE EVENT DATE: 201809
